FAERS Safety Report 22214446 (Version 2)
Quarter: 2023Q2

REPORT INFORMATION
  Report Type: Spontaneous
  Country: US (occurrence: US)
  Receive Date: 20230414
  Receipt Date: 20230605
  Transmission Date: 20230721
  Serious: Yes (Other)
  Sender: FDA-Public Use
  Company Number: US-SA-SAC20230410000151

PATIENT

DRUGS (1)
  1. LARONIDASE [Suspect]
     Active Substance: LARONIDASE
     Indication: Mucopolysaccharidosis I
     Dosage: 20.3 UNK, QW
     Route: 042
     Dates: start: 20111207

REACTIONS (7)
  - Pelvic fracture [Unknown]
  - Pelvic pain [Unknown]
  - Gait disturbance [Unknown]
  - Acetabulum fracture [Unknown]
  - Vitamin D decreased [Unknown]
  - Fractured sacrum [Unknown]
  - Spondylolisthesis [Unknown]
